FAERS Safety Report 7355887-X (Version None)
Quarter: 2011Q1

REPORT INFORMATION
  Report Type: 
  Country: None (occurrence: None)
  Receive Date: 20110311
  Receipt Date: 20110311
  Transmission Date: 20110831
  Serious: No
  Sender: FDA-Public Use
  Company Number: None

PATIENT
  Age: 52 Year
  Sex: Female

DRUGS (4)
  1. ISONIAZID [Suspect]
     Dates: start: 20080301, end: 20080419
  2. VIVELLE [Concomitant]
  3. SYNTHROID [Concomitant]
  4. BONIVA [Concomitant]

REACTIONS (6)
  - ALANINE AMINOTRANSFERASE INCREASED [None]
  - HEPATOTOXICITY [None]
  - HEPATIC ENZYME INCREASED [None]
  - HEPATITIS [None]
  - LIVER DISORDER [None]
  - CHOLECYSTITIS ACUTE [None]
